FAERS Safety Report 4860390-2 (Version None)
Quarter: 2005Q4

REPORT INFORMATION
  Report Type: 
  Country: None (occurrence: None)
  Receive Date: 20051219
  Receipt Date: 20051209
  Transmission Date: 20060501
  Serious: Yes (Other)
  Sender: FDA-Public Use
  Company Number: CA-BRISTOL-MYERS SQUIBB COMPANY-13217716

PATIENT
  Age: 84 Year
  Sex: Male

DRUGS (6)
  1. TEQUIN [Suspect]
     Route: 048
  2. AMIODARONE HCL [Concomitant]
  3. COUMADIN [Concomitant]
  4. DIAMICRON [Concomitant]
  5. LANOXIN [Concomitant]
  6. LASIX [Concomitant]

REACTIONS (1)
  - HYPERGLYCAEMIA [None]
